FAERS Safety Report 22310276 (Version 1)
Quarter: 2023Q2

REPORT INFORMATION
  Report Type: Spontaneous
  Country: US (occurrence: US)
  Receive Date: 20230511
  Receipt Date: 20230511
  Transmission Date: 20230721
  Serious: No
  Sender: FDA-Public Use
  Company Number: US-PERRIGO-23US002636

PATIENT
  Age: 43 Year
  Sex: Female
  Weight: 70.748 kg

DRUGS (4)
  1. MICONAZOLE 3 COMBINATION PACK [Suspect]
     Active Substance: MICONAZOLE NITRATE
     Indication: Vulvovaginal mycotic infection
     Dosage: 200 MG, NIGHTLY
     Route: 067
     Dates: start: 20230220, end: 20230223
  2. MICONAZOLE 3 COMBINATION PACK [Suspect]
     Active Substance: MICONAZOLE NITRATE
     Indication: Vulvovaginal mycotic infection
     Dosage: SMALL AMOUNT, NIGHTLY
     Route: 061
     Dates: start: 20230220, end: 20230223
  3. FLUCONAZOLE [Concomitant]
     Active Substance: FLUCONAZOLE
     Indication: Vulvovaginal mycotic infection
     Dosage: 150 MG, UNKNOWN
     Route: 065
     Dates: start: 20230221
  4. VAGISIL MEDICATED CREAM [Concomitant]
     Indication: Vulvovaginal mycotic infection
     Dosage: UNKNOWN, UNKNOWN
     Route: 065
     Dates: start: 20230220

REACTIONS (1)
  - Drug ineffective [Unknown]

NARRATIVE: CASE EVENT DATE: 20230220
